FAERS Safety Report 7224985-3 (Version None)
Quarter: 2010Q4

REPORT INFORMATION
  Report Type: 
  Country: None (occurrence: None)
  Receive Date: 20101227
  Receipt Date: 20101206
  Transmission Date: 20110411
  Serious: Yes (Other)
  Sender: FDA-Public Use
  Company Number: GAM-334-10-FR

PATIENT
  Age: 56 Year
  Sex: Female

DRUGS (10)
  1. OCTAGAM [Suspect]
     Indication: MYOSITIS
     Dosage: I.V.
     Route: 042
     Dates: start: 20100415, end: 20100416
  2. COUMADIN [Suspect]
     Indication: ATRIAL FIBRILLATION
     Dosage: 5 MG
     Dates: start: 20100302, end: 20100518
  3. NEBIVOLOL [Concomitant]
  4. AZATHIOPRINE SODIUM [Concomitant]
  5. CALCIT (CALCIUM AND VITAMIN D3) [Concomitant]
  6. ACTONEL [Concomitant]
  7. METHOTREXATE [Concomitant]
  8. CORTANCYL (PREDNISONE) [Concomitant]
  9. SPECIAFOLDINE (FOLIC ACID) [Concomitant]
  10. LOVENOX [Concomitant]

REACTIONS (4)
  - FALL [None]
  - HAEMATOMA [None]
  - INCORRECT DOSE ADMINISTERED [None]
  - INTERNATIONAL NORMALISED RATIO DECREASED [None]
